FAERS Safety Report 11071957 (Version 1)
Quarter: 2015Q2

REPORT INFORMATION
  Report Type: Spontaneous
  Country: CA (occurrence: CA)
  Receive Date: 20150428
  Receipt Date: 20150428
  Transmission Date: 20150821
  Serious: Yes (Other)
  Sender: FDA-Public Use
  Company Number: CA-MALLINCKRODT-T201502173

PATIENT
  Age: 34 Year
  Sex: Male

DRUGS (1)
  1. METHADOSE [Suspect]
     Active Substance: METHADONE HYDROCHLORIDE
     Indication: DRUG DEPENDENCE
     Dosage: 120 MG, 1 Q 1 DAY(S)
     Route: 065

REACTIONS (3)
  - Anxiety [Unknown]
  - Agitation [Unknown]
  - Product substitution issue [Unknown]
